FAERS Safety Report 24960477 (Version 1)
Quarter: 2025Q1

REPORT INFORMATION
  Report Type: Spontaneous
  Country: CN (occurrence: CN)
  Receive Date: 20250212
  Receipt Date: 20250212
  Transmission Date: 20250408
  Serious: Yes (Hospitalization)
  Sender: PFIZER
  Company Number: CN-PFIZER INC-PV202500014888

PATIENT
  Age: 36 Year
  Sex: Female
  Weight: 50.8 kg

DRUGS (3)
  1. CYTARABINE [Suspect]
     Active Substance: CYTARABINE
     Indication: Acute myeloid leukaemia
     Dosage: 3 G, 2X/DAY
     Route: 041
     Dates: start: 20250109, end: 20250111
  2. VENETOCLAX [Concomitant]
     Active Substance: VENETOCLAX
     Indication: Acute myeloid leukaemia
     Dosage: 400 MG, 1X/DAY
     Route: 048
     Dates: start: 20250109, end: 20250115
  3. AZACITIDINE [Concomitant]
     Active Substance: AZACITIDINE
     Route: 041
     Dates: start: 20250109

REACTIONS (3)
  - Full blood count decreased [Recovering/Resolving]
  - C-reactive protein increased [Unknown]
  - Interleukin level increased [Unknown]

NARRATIVE: CASE EVENT DATE: 20250111
